FAERS Safety Report 16122650 (Version 1)
Quarter: 2019Q1

REPORT INFORMATION
  Report Type: Spontaneous
  Country: DE (occurrence: DE)
  Receive Date: 20190327
  Receipt Date: 20190327
  Transmission Date: 20190418
  Serious: Yes (Hospitalization)
  Sender: FDA-Public Use
  Company Number: DE-009507513-1903DEU008589

PATIENT
  Age: 38 Year
  Sex: Female

DRUGS (10)
  1. CERTOMYCIN [Concomitant]
  2. CIPROBAY (CIPROFLOXACIN) [Concomitant]
     Active Substance: CIPROFLOXACIN
  3. TARGOCID [Concomitant]
     Active Substance: TEICOPLANIN
  4. ZIENAM 500 [Suspect]
     Active Substance: CILASTATIN SODIUM\IMIPENEM
     Indication: PNEUMONIA
     Dosage: UNK
     Route: 065
     Dates: start: 19960210
  5. PHENHYDAN [Suspect]
     Active Substance: PHENYTOIN
     Indication: PRODUCT USED FOR UNKNOWN INDICATION
     Route: 065
  6. NEUPOGEN [Concomitant]
     Active Substance: FILGRASTIM
     Indication: LEUKOPENIA
  7. TRETINOIN. [Suspect]
     Active Substance: TRETINOIN
     Indication: ACUTE PROMYELOCYTIC LEUKAEMIA
     Route: 065
     Dates: start: 19960301, end: 19960315
  8. RANITIDINE. [Suspect]
     Active Substance: RANITIDINE
     Indication: PRODUCT USED FOR UNKNOWN INDICATION
     Route: 065
  9. SPIZEF [Concomitant]
     Indication: PNEUMONIA
     Dates: start: 19960205
  10. CLONT [Concomitant]

REACTIONS (3)
  - Dermatitis bullous [Unknown]
  - Leukocytosis [Recovering/Resolving]
  - Thrombocytosis [Recovering/Resolving]

NARRATIVE: CASE EVENT DATE: 19960301
